FAERS Safety Report 9375516 (Version 3)
Quarter: 2014Q1

REPORT INFORMATION
  Report Type: Spontaneous
  Country: US (occurrence: US)
  Receive Date: 20130628
  Receipt Date: 20140213
  Transmission Date: 20141002
  Serious: Yes (Other)
  Sender: FDA-Public Use
  Company Number: US-UCBSA-089647

PATIENT
  Age: 55 Year
  Sex: Female

DRUGS (3)
  1. KEPPRA XR [Suspect]
     Indication: CONVULSION
     Dosage: 31-DEC-2015,DOSE STRENGTH: 500 MG 2/DAILY
  2. TRAMADOL [Concomitant]
     Indication: FIBROMYALGIA
     Dosage: UNSPECIFIED DOSE
  3. SOMA [Concomitant]
     Dosage: UNSPECIFIED DOSE

REACTIONS (4)
  - Upper limb fracture [Recovering/Resolving]
  - Convulsion [Not Recovered/Not Resolved]
  - Fall [Recovered/Resolved]
  - Headache [Not Recovered/Not Resolved]
